FAERS Safety Report 15116845 (Version 1)
Quarter: 2018Q3

REPORT INFORMATION
  Report Type: Spontaneous
  Country: US (occurrence: US)
  Receive Date: 20180612
  Receipt Date: 20180612
  Transmission Date: 20181010
  Serious: Yes (Life-Threatening, Hospitalization)
  Sender: FDA-Public Use
  Company Number: None

PATIENT
  Age: 11 Year
  Sex: Male
  Weight: 68 kg

DRUGS (4)
  1. RANITIDINE. [Concomitant]
     Active Substance: RANITIDINE
  2. BACTRIM [Concomitant]
     Active Substance: SULFAMETHOXAZOLE\TRIMETHOPRIM
  3. PREDNISONE. [Concomitant]
     Active Substance: PREDNISONE
  4. JADENU [Suspect]
     Active Substance: DEFERASIROX
     Indication: IRON OVERLOAD
     Route: 048
     Dates: start: 20161201, end: 20180605

REACTIONS (15)
  - Vomiting [None]
  - Lactic acidosis [None]
  - Full blood count abnormal [None]
  - Somnolence [None]
  - Speech disorder [None]
  - Alanine aminotransferase increased [None]
  - Aspartate aminotransferase increased [None]
  - Aggression [None]
  - Infection [None]
  - Diarrhoea [None]
  - Hyperammonaemia [None]
  - Dialysis [None]
  - Nausea [None]
  - Confusional state [None]
  - International normalised ratio increased [None]

NARRATIVE: CASE EVENT DATE: 20180607
